FAERS Safety Report 8955738 (Version 4)
Quarter: 2013Q3

REPORT INFORMATION
  Report Type: Spontaneous
  Country: US (occurrence: US)
  Receive Date: 20121210
  Receipt Date: 20130829
  Transmission Date: 20140515
  Serious: Yes (Hospitalization, Other)
  Sender: FDA-Public Use
  Company Number: US-009507513-1212USA002253

PATIENT
  Sex: Female
  Weight: 117.91 kg

DRUGS (1)
  1. NUVARING [Suspect]
     Indication: CONTRACEPTION
     Dosage: UNK
     Route: 067
     Dates: start: 201010, end: 201012

REACTIONS (5)
  - Pulmonary embolism [Recovering/Resolving]
  - Oesophagitis [Unknown]
  - Chest pain [Unknown]
  - Blood pressure increased [Unknown]
  - Pelvic venous thrombosis [Unknown]
